FAERS Safety Report 7501381-2 (Version None)
Quarter: 2011Q2

REPORT INFORMATION
  Report Type: 
  Country: None (occurrence: None)
  Receive Date: 20110524
  Receipt Date: 20110510
  Transmission Date: 20111010
  Serious: Yes (Disabling, Other)
  Sender: FDA-Public Use
  Company Number: GB-WATSON-2011-07034

PATIENT
  Sex: Female

DRUGS (1)
  1. LAMOTRIGINE [Suspect]
     Indication: EPILEPSY
     Dosage: 50 MG, UNK

REACTIONS (18)
  - PRESYNCOPE [None]
  - DYSPNOEA [None]
  - RASH [None]
  - PHOTOPHOBIA [None]
  - NAUSEA [None]
  - MUSCULOSKELETAL STIFFNESS [None]
  - LYMPHADENOPATHY [None]
  - WEIGHT DECREASED [None]
  - RESTLESSNESS [None]
  - DIZZINESS [None]
  - ARTHRALGIA [None]
  - GAIT DISTURBANCE [None]
  - INFLUENZA LIKE ILLNESS [None]
  - STOMATITIS [None]
  - EYE INFLAMMATION [None]
  - HEADACHE [None]
  - DRY MOUTH [None]
  - BACK PAIN [None]
